FAERS Safety Report 5441365-1 (Version None)
Quarter: 2007Q3

REPORT INFORMATION
  Report Type: 
  Country: None (occurrence: None)
  Receive Date: 20070903
  Receipt Date: 20070828
  Transmission Date: 20080115
  Serious: Yes (Other)
  Sender: FDA-Public Use
  Company Number: PHNU2007DE02984

PATIENT
  Sex: Male

DRUGS (2)
  1. VOLTAREN [Suspect]
     Indication: TENDON DISORDER
     Dosage: 100 MG, ONCE/SINGLE
     Dates: start: 20070310, end: 20070310
  2. METHYLPREDNISOLONE [Concomitant]
     Indication: ASTHMA
     Dosage: 170 TO 180MG/DAY

REACTIONS (2)
  - DYSPNOEA [None]
  - STATUS ASTHMATICUS [None]
